FAERS Safety Report 21059851 (Version 1)
Quarter: 2022Q3

REPORT INFORMATION
  Report Type: Spontaneous
  Country: US (occurrence: US)
  Receive Date: 20220708
  Receipt Date: 20220708
  Transmission Date: 20221026
  Serious: No
  Sender: FDA-Public Use
  Company Number: US-SANOFI-01169485

PATIENT
  Age: 83 Year
  Sex: Male

DRUGS (2)
  1. ZALTRAP [Suspect]
     Active Substance: ZIV-AFLIBERCEPT
     Indication: Colorectal cancer stage IV
     Dosage: 200 MG QOW
  2. AVASTIN [Concomitant]
     Active Substance: BEVACIZUMAB

REACTIONS (7)
  - Mouth ulceration [Not Recovered/Not Resolved]
  - Gait inability [Not Recovered/Not Resolved]
  - Lethargy [Not Recovered/Not Resolved]
  - Fatigue [Not Recovered/Not Resolved]
  - Decreased appetite [Not Recovered/Not Resolved]
  - Diarrhoea [Not Recovered/Not Resolved]
  - Hypertension [Not Recovered/Not Resolved]
